FAERS Safety Report 7239814-1 (Version None)
Quarter: 2011Q1

REPORT INFORMATION
  Report Type: 
  Country: None (occurrence: None)
  Receive Date: 20110122
  Receipt Date: 20101123
  Transmission Date: 20110831
  Serious: No
  Sender: FDA-Public Use
  Company Number: US-ALLERGAN-1015273US

PATIENT
  Age: 34 Year
  Sex: Female

DRUGS (3)
  1. LATISSE [Suspect]
     Dosage: 1 GTT, QHS
     Dates: start: 20101125
  2. LATISSE [Suspect]
     Indication: GROWTH OF EYELASHES
     Dosage: 1 GTT, QHS
     Dates: start: 20101110, end: 20101122
  3. OTC EYE DROPS [Concomitant]

REACTIONS (4)
  - APPLICATION SITE DISCOLOURATION [None]
  - EYELIDS PRURITUS [None]
  - BURNING SENSATION [None]
  - WRONG TECHNIQUE IN DRUG USAGE PROCESS [None]
